FAERS Safety Report 22130195 (Version 1)
Quarter: 2023Q1

REPORT INFORMATION
  Report Type: Spontaneous
  Country: DE (occurrence: DE)
  Receive Date: 20230323
  Receipt Date: 20230323
  Transmission Date: 20230418
  Serious: Yes (Death, Hospitalization, Other)
  Sender: FDA-Public Use
  Company Number: None

PATIENT
  Age: 57 Year
  Sex: Male
  Weight: 75 kg

DRUGS (14)
  1. FLUDARA [Suspect]
     Active Substance: FLUDARABINE PHOSPHATE
     Indication: Myelodysplastic syndrome
     Dosage: DAILY DOSE: 57 MG MILLGRAM(S) EVERY DAY
     Dates: start: 20020823, end: 20020826
  2. ISONIAZID [Suspect]
     Active Substance: ISONIAZID
     Dosage: UNK
     Route: 065
     Dates: start: 20020823, end: 20020826
  3. MABCAMPATH [Suspect]
     Active Substance: ALEMTUZUMAB
     Indication: Myelodysplastic syndrome
     Dosage: 16 MG, UNK
     Route: 065
     Dates: start: 20020826, end: 20020826
  4. MABCAMPATH [Suspect]
     Active Substance: ALEMTUZUMAB
     Dosage: 20 MG
     Route: 065
     Dates: start: 20020823, end: 20020825
  5. PENTAMIDINE [Concomitant]
     Active Substance: PENTAMIDINE
     Dosage: UNK
     Route: 065
  6. AMPHOTERICIN B [Concomitant]
     Active Substance: AMPHOTERICIN B
     Dosage: UNK
     Route: 065
  7. ZOVIRAX [Concomitant]
     Active Substance: ACYCLOVIR
     Dosage: UNK
     Route: 065
  8. VANCOMYCIN [Concomitant]
     Active Substance: VANCOMYCIN
     Dosage: UNK
     Route: 065
  9. OCTAGAM IMMUNE GLOBULIN (HUMAN) [Concomitant]
     Active Substance: HUMAN IMMUNOGLOBULIN G
     Dosage: UNK
     Route: 065
  10. CEFTAZIDIME [Concomitant]
     Active Substance: CEFTAZIDIME
     Dosage: UNK
     Route: 065
  11. METRONIDAZOLE [Concomitant]
     Active Substance: METRONIDAZOLE
     Dosage: UNK
     Route: 065
  12. CYCLOSPORINE [Concomitant]
     Active Substance: CYCLOSPORINE
     Dosage: UNK
     Route: 065
  13. METHOTREXATE [Concomitant]
     Active Substance: METHOTREXATE
     Dosage: UNK
     Route: 065
  14. NATAMYCIN [Concomitant]
     Active Substance: NATAMYCIN
     Dosage: UNK
     Route: 065

REACTIONS (41)
  - Headache [Fatal]
  - Hepatotoxicity [Fatal]
  - Cardiac hypertrophy [Fatal]
  - Incontinence [Fatal]
  - Graft versus host disease [Fatal]
  - Pain in extremity [Fatal]
  - Acute kidney injury [Fatal]
  - Brain oedema [Fatal]
  - Pericardial fibrosis [Fatal]
  - Pneumonia [Fatal]
  - Purpura [Fatal]
  - Pulmonary toxicity [Fatal]
  - Hepatic failure [Fatal]
  - Coma [Fatal]
  - Sepsis [Fatal]
  - Bone marrow failure [Fatal]
  - Disorientation [Fatal]
  - Pulmonary oedema [Fatal]
  - Disturbance in attention [Fatal]
  - Right ventricular failure [Fatal]
  - Central venous pressure increased [Fatal]
  - Mucosal inflammation [Fatal]
  - Pericarditis [Fatal]
  - Venoocclusive disease [Fatal]
  - Disorientation [Fatal]
  - Diabetes mellitus [Fatal]
  - Impetigo [Fatal]
  - Heart rate increased [Fatal]
  - Right ventricular enlargement [Fatal]
  - Respiratory failure [Fatal]
  - Oxygen saturation decreased [Fatal]
  - Blood alkaline phosphatase increased [Fatal]
  - Neurotoxicity [Fatal]
  - Atrial fibrillation [Fatal]
  - Pneumonia fungal [Fatal]
  - Aspergillus infection [Fatal]
  - Acute kidney injury [Unknown]
  - Arrhythmia [Unknown]
  - Fungal infection [Unknown]
  - Renal impairment [Unknown]
  - Agitation [Unknown]

NARRATIVE: CASE EVENT DATE: 20020827
